FAERS Safety Report 11657250 (Version 2)
Quarter: 2015Q4

REPORT INFORMATION
  Report Type: Report from Study
  Country: US (occurrence: US)
  Receive Date: 20151023
  Receipt Date: 20151027
  Transmission Date: 20160304
  Serious: No
  Sender: FDA-Public Use
  Company Number: US-ABBVIE-15P-163-1412027-00

PATIENT
  Age: 33 Year
  Sex: Female

DRUGS (4)
  1. ULTRAM [Suspect]
     Active Substance: TRAMADOL HYDROCHLORIDE
     Indication: PELVIC PAIN
     Route: 065
     Dates: start: 20150528
  2. BACLOFEN. [Suspect]
     Active Substance: BACLOFEN
     Indication: PELVIC PAIN
     Route: 065
  3. LUPRON DEPOT [Suspect]
     Active Substance: LEUPROLIDE ACETATE
     Indication: ENDOMETRIOSIS
     Route: 065
     Dates: start: 20150527
  4. NORETHINDRONE ACETATE. [Suspect]
     Active Substance: NORETHINDRONE ACETATE
     Indication: PRODUCT USED FOR UNKNOWN INDICATION
     Route: 065
     Dates: start: 20150527

REACTIONS (9)
  - Weight increased [Not Recovered/Not Resolved]
  - Libido decreased [Unknown]
  - Night sweats [Unknown]
  - Mood altered [Unknown]
  - Migraine [Unknown]
  - Herpes zoster [Not Recovered/Not Resolved]
  - Fatigue [Unknown]
  - Migraine [Unknown]
  - Hot flush [Unknown]

NARRATIVE: CASE EVENT DATE: 20150531
